FAERS Safety Report 5053536-7 (Version None)
Quarter: 2006Q3

REPORT INFORMATION
  Report Type: 
  Country: None (occurrence: None)
  Receive Date: 20060712
  Receipt Date: 20060626
  Transmission Date: 20061208
  Serious: Yes (Other)
  Sender: FDA-Public Use
  Company Number: DE200606005471

PATIENT
  Age: 74 Year
  Sex: Female

DRUGS (6)
  1. ZYPREXA [Suspect]
     Indication: BIPOLAR I DISORDER
     Dosage: 5 MG, DAILY (1/D) ORAL
     Route: 048
     Dates: start: 20060403, end: 20060406
  2. NORTRILEN (NORTRIPTYLINE HYDROCHLORIDE) [Concomitant]
  3. EUNERPAN (MELPERONE HYDROCHLORIDE) [Concomitant]
  4. BLOPRESS(CANDESARTAN CILEXETIL) [Concomitant]
  5. DISALUNIL (HYDROCHLOROTHIAZIDE) [Concomitant]
  6. L-THYROXIN (LEVOTHRYOXINE SODIUM) [Concomitant]

REACTIONS (1)
  - DEEP VEIN THROMBOSIS [None]
